FAERS Safety Report 15509302 (Version 1)
Quarter: 2018Q4

REPORT INFORMATION
  Report Type: Spontaneous
  Country: US (occurrence: US)
  Receive Date: 20181016
  Receipt Date: 20181016
  Transmission Date: 20190205
  Serious: No
  Sender: FDA-Public Use
  Company Number: None

PATIENT
  Sex: Female

DRUGS (2)
  1. PROPRANOLOL 20 MG [Suspect]
     Active Substance: PROPRANOLOL HYDROCHLORIDE
  2. METOPROLOL. [Suspect]
     Active Substance: METOPROLOL

REACTIONS (2)
  - Tachycardia [None]
  - Dyspnoea [None]
